FAERS Safety Report 7311675-1 (Version None)
Quarter: 2011Q1

REPORT INFORMATION
  Report Type: 
  Country: None (occurrence: None)
  Receive Date: 20110224
  Receipt Date: 20110217
  Transmission Date: 20110831
  Serious: No
  Sender: FDA-Public Use
  Company Number: US-ALEXION-A201001624

PATIENT
  Sex: Female

DRUGS (12)
  1. SOLIRIS [Suspect]
     Indication: PAROXYSMAL NOCTURNAL HAEMOGLOBINURIA
     Dosage: 600 MG, QW
     Route: 042
     Dates: start: 20101001, end: 20100101
  2. CLARITIN                           /00917501/ [Concomitant]
     Dosage: UNK
     Route: 048
  3. BENADRYL [Concomitant]
     Dosage: UNK
     Route: 048
  4. SOLIRIS [Suspect]
     Dosage: 900 MG, Q2W
     Route: 042
     Dates: start: 20100101
  5. MULTI-VITAMINS [Concomitant]
     Dosage: UNK
     Route: 048
  6. CRANBERRY                          /01512301/ [Concomitant]
     Dosage: UNK
     Route: 048
  7. IRON DEXTRAN [Concomitant]
     Dosage: 325 MG, QD
     Route: 048
  8. EXCEDRIN                           /00391201/ [Concomitant]
     Dosage: UNK
     Route: 048
  9. TYLENOL (CAPLET) [Concomitant]
     Dosage: UNK
     Route: 048
  10. VITAMIN C                          /00008001/ [Concomitant]
     Dosage: UNK
     Route: 048
  11. FOLIC ACID [Concomitant]
     Dosage: 400 UG, QD
     Route: 048
  12. MELATONIN [Concomitant]
     Dosage: UNK
     Route: 048

REACTIONS (4)
  - ABDOMINAL PAIN [None]
  - CYSTITIS [None]
  - POLYCYSTIC OVARIES [None]
  - DRUG INEFFECTIVE [None]
